FAERS Safety Report 8250617-1 (Version None)
Quarter: 2012Q1

REPORT INFORMATION
  Report Type: 
  Country: None (occurrence: None)
  Receive Date: 20120328
  Receipt Date: 20120315
  Transmission Date: 20120608
  Serious: Yes (Other)
  Sender: FDA-Public Use
  Company Number: 2012MA003664

PATIENT
  Age: 82 Year
  Sex: Female

DRUGS (1)
  1. GEMCITABINE HYDROCHLORIDE [Suspect]
     Indication: PANCREATIC CARCINOMA
     Dosage: 1500 MG; IV
     Route: 042

REACTIONS (2)
  - DIZZINESS [None]
  - PRODUCT SUBSTITUTION ISSUE [None]
